FAERS Safety Report 12694566 (Version 1)
Quarter: 2016Q3

REPORT INFORMATION
  Report Type: Spontaneous
  Country: CN (occurrence: CN)
  Receive Date: 20160829
  Receipt Date: 20160829
  Transmission Date: 20161109
  Serious: Yes (Other)
  Sender: FDA-Public Use
  Company Number: CN-JNJFOC-20160815182

PATIENT

DRUGS (2)
  1. IBUPROFEN. [Suspect]
     Active Substance: IBUPROFEN
     Indication: PATENT DUCTUS ARTERIOSUS
     Dosage: 10 MG/KG, FOLLOWED BY 5 MG/KG FOR THE 2ND AND 3RD DOSE, WITH INTERVAL OF 24 HOURS,
     Route: 048
  2. IBUPROFEN. [Suspect]
     Active Substance: IBUPROFEN
     Route: 048

REACTIONS (5)
  - Off label use [Recovered/Resolved]
  - Product use issue [Recovered/Resolved]
  - Drug ineffective for unapproved indication [Unknown]
  - Renal impairment [Recovered/Resolved]
  - Oliguria [Recovered/Resolved]
